FAERS Safety Report 4925092-2 (Version None)
Quarter: 2006Q1

REPORT INFORMATION
  Report Type: 
  Country: None (occurrence: None)
  Receive Date: 20060228
  Receipt Date: 20060222
  Transmission Date: 20060701
  Serious: Yes (Other)
  Sender: FDA-Public Use
  Company Number: JP-SP-2006-00459

PATIENT
  Age: 63 Year
  Sex: Male

DRUGS (1)
  1. IMMUCYST [Suspect]
     Indication: BLADDER CANCER
     Route: 043
     Dates: start: 20050908, end: 20051102

REACTIONS (4)
  - CYSTITIS [None]
  - DYSURIA [None]
  - MICTURITION URGENCY [None]
  - POLLAKIURIA [None]
